FAERS Safety Report 9808723 (Version 1)
Quarter: 2014Q1

REPORT INFORMATION
  Report Type: Spontaneous
  Country: TR (occurrence: TR)
  Receive Date: 20140110
  Receipt Date: 20140110
  Transmission Date: 20141002
  Serious: Yes (Other)
  Sender: FDA-Public Use
  Company Number: TR-PERRIGO-14TR000013

PATIENT
  Age: 13 Year
  Sex: 0

DRUGS (2)
  1. NAPROXEN SODIUM 220 MG 368 [Suspect]
     Indication: ALLERGY TEST
     Dosage: INCREASING DOSES UP TO A MAXIMUM OF 7 MG/KG/DAY, Q 1H
     Route: 048
  2. NAPROXEN SODIUM 220 MG 368 [Suspect]
     Indication: PRODUCT USED FOR UNKNOWN INDICATION
     Dosage: UNK
     Route: 048

REACTIONS (1)
  - Anaphylactic reaction [Recovered/Resolved]
